FAERS Safety Report 6758558-3 (Version None)
Quarter: 2010Q2

REPORT INFORMATION
  Report Type: 
  Country: None (occurrence: None)
  Receive Date: 20100607
  Receipt Date: 20100527
  Transmission Date: 20101027
  Serious: Yes (Life-Threatening, Hospitalization, Other)
  Sender: FDA-Public Use
  Company Number: US-ELI_LILLY_AND_COMPANY-US201004008195

PATIENT
  Age: 67 Year
  Sex: Male
  Weight: 119.73 kg

DRUGS (15)
  1. EFFIENT [Suspect]
     Indication: PERCUTANEOUS CORONARY INTERVENTION
     Dosage: 60 MG, UNK
  2. EFFIENT [Suspect]
     Dosage: 10 MG, DAILY (1/D)
     Dates: end: 20100426
  3. EFFIENT [Suspect]
     Dosage: 10 MG, DAILY (1/D)
     Dates: start: 20100428
  4. ALLOPURINOL [Concomitant]
  5. ASPIRIN [Concomitant]
  6. RANEXA [Concomitant]
  7. LOTENSIN [Concomitant]
  8. NORCO [Concomitant]
  9. MULTI-VITAMIN [Concomitant]
  10. GEMFIBROZIL [Concomitant]
  11. PREVACID [Concomitant]
  12. AMBIEN [Concomitant]
  13. COLCHICINE [Concomitant]
  14. NITROGLYCERIN [Concomitant]
     Route: 060
  15. COREG [Concomitant]

REACTIONS (1)
  - ANGIOEDEMA [None]
